FAERS Safety Report 8215267-1 (Version None)
Quarter: 2012Q1

REPORT INFORMATION
  Report Type: 
  Country: None (occurrence: None)
  Receive Date: 20120316
  Receipt Date: 20120302
  Transmission Date: 20120608
  Serious: Yes (Other)
  Sender: FDA-Public Use
  Company Number: US-MYLANLABS-2012S1004963

PATIENT
  Age: 94 Year
  Sex: Female

DRUGS (2)
  1. WARFARIN SODIUM [Suspect]
     Route: 065
  2. VITAMIN E [Interacting]
     Indication: SUPPLEMENTATION THERAPY
     Route: 065

REACTIONS (3)
  - POTENTIATING DRUG INTERACTION [None]
  - EPISTAXIS [None]
  - CONTUSION [None]
